FAERS Safety Report 15011745 (Version 1)
Quarter: 2018Q2

REPORT INFORMATION
  Report Type: Spontaneous
  Country: DE (occurrence: DE)
  Receive Date: 20180614
  Receipt Date: 20180614
  Transmission Date: 20180711
  Serious: Yes (Death, Congenital Anomaly)
  Sender: FDA-Public Use
  Company Number: DE-BAYER-2018-105965

PATIENT
  Age: 0 Day
  Sex: Male
  Weight: 2.31 kg

DRUGS (1)
  1. JAYDESS [Suspect]
     Active Substance: LEVONORGESTREL
     Dosage: 14 MCG/24HR, CONT
     Route: 064
     Dates: start: 20161117

REACTIONS (4)
  - Congenital anomaly [Fatal]
  - Diaphragmatic hernia [None]
  - Cerebellar hypoplasia [None]
  - Low birth weight baby [None]

NARRATIVE: CASE EVENT DATE: 20180321
